FAERS Safety Report 8808041 (Version 1)
Quarter: 2012Q4

REPORT INFORMATION
  Report Type: 
  Country: BR (occurrence: BR)
  Receive Date: 20120925
  Receipt Date: 20120925
  Transmission Date: 20130627
  Serious: Yes (Other)
  Sender: FDA-Public Use
  Company Number: BR-US-EMD SERONO, INC.-7161862

PATIENT
  Sex: Male

DRUGS (3)
  1. SAIZEN [Suspect]
     Indication: MUSCLE MASS
     Dates: start: 20101215
  2. SAIZEN [Suspect]
     Indication: PROPHYLAXIS
  3. OVIDREL [Suspect]
     Indication: MUSCLE MASS

REACTIONS (3)
  - Hypertension [Unknown]
  - Off label use [Unknown]
  - Prescription form tampering [Unknown]
